FAERS Safety Report 7551009-0 (Version None)
Quarter: 2011Q2

REPORT INFORMATION
  Report Type: 
  Country: None (occurrence: None)
  Receive Date: 20110616
  Receipt Date: 20110606
  Transmission Date: 20111010
  Serious: Yes (Hospitalization)
  Sender: FDA-Public Use
  Company Number: DE-ELI_LILLY_AND_COMPANY-DE201106001502

PATIENT
  Sex: Female

DRUGS (4)
  1. CALCIUM SANDOZ [Concomitant]
  2. VITAMIN D [Concomitant]
  3. NOVALGIN                           /06276704/ [Concomitant]
     Dosage: UNK
     Dates: start: 20110324
  4. FORTEO [Suspect]
     Indication: OSTEOPOROSIS
     Dosage: UNK, QD
     Route: 058
     Dates: start: 20100301

REACTIONS (3)
  - DIZZINESS [None]
  - LOCALISED INFECTION [None]
  - FALL [None]
